FAERS Safety Report 24655033 (Version 1)
Quarter: 2024Q4

REPORT INFORMATION
  Report Type: Report from Study
  Country: RO (occurrence: RO)
  Receive Date: 20241122
  Receipt Date: 20241122
  Transmission Date: 20250114
  Serious: Yes (Other)
  Sender: RECORDATI
  Company Number: RO-ORPHANEU-2024009114

PATIENT

DRUGS (1)
  1. SILTUXIMAB [Suspect]
     Active Substance: SILTUXIMAB
     Indication: Castleman^s disease
     Dosage: 11 MILLIGRAM/KILOGRAM, Q3W (EVERY THREE WEEKS) 1-H INTRAVENOUS INFUSION
     Route: 042

REACTIONS (1)
  - Atrial fibrillation [Unknown]
